FAERS Safety Report 8623269-6 (Version None)
Quarter: 2012Q3

REPORT INFORMATION
  Report Type: 
  Country: None (occurrence: None)
  Receive Date: 20120827
  Receipt Date: 20120822
  Transmission Date: 20120928
  Serious: Yes (Hospitalization, Other)
  Sender: FDA-Public Use
  Company Number: US-BAYER-2012-086426

PATIENT
  Age: 21 Year
  Sex: Female

DRUGS (15)
  1. AMIKACIN [Concomitant]
     Route: 042
  2. PREDNISONE TAB [Concomitant]
  3. MELOXICAM [Suspect]
  4. IMMUNE GLOBULIN NOS [Concomitant]
     Dosage: 1000 MG/KG, UNK
     Route: 042
  5. CIPROFLOXACIN HCL [Suspect]
     Indication: URINARY TRACT INFECTION
  6. DIPHENHYDRAMINE HYDROCHLORIDE [Concomitant]
     Indication: PRURITUS
     Route: 061
  7. TOBRAMYCIN [Concomitant]
     Route: 047
  8. PREDNISONE TAB [Concomitant]
     Dosage: DAILY DOSE 60 MG
     Route: 042
  9. VANCOMYCIN [Concomitant]
  10. PREDNISONE TAB [Concomitant]
  11. PREDNISONE TAB [Concomitant]
     Dosage: DAILY DOSE 20 MG
  12. IMMUNE GLOBULIN NOS [Concomitant]
     Route: 042
  13. ALLOPURINOL [Suspect]
     Indication: BLOOD URIC ACID INCREASED
  14. AMOXICILLIN AND CLAVULANATE POTASSIUM [Concomitant]
  15. MICONAZOLE [Concomitant]
     Indication: VULVOVAGINAL MYCOTIC INFECTION

REACTIONS (6)
  - FLUID OVERLOAD [None]
  - SKIN EXFOLIATION [None]
  - TOXIC EPIDERMAL NECROLYSIS [None]
  - ACUTE RESPIRATORY DISTRESS SYNDROME [None]
  - PERICARDIAL EFFUSION [None]
  - HAEMOLYTIC ANAEMIA [None]
